FAERS Safety Report 7170617-2 (Version None)
Quarter: 2010Q4

REPORT INFORMATION
  Report Type: 
  Country: None (occurrence: None)
  Receive Date: 20101217
  Receipt Date: 20101209
  Transmission Date: 20110411
  Serious: Yes (Other)
  Sender: FDA-Public Use
  Company Number: A0898943A

PATIENT
  Sex: Male

DRUGS (1)
  1. ZIAGEN [Suspect]
     Route: 065

REACTIONS (3)
  - DECREASED ACTIVITY [None]
  - DEPRESSION [None]
  - SUICIDAL IDEATION [None]
